FAERS Safety Report 25451042 (Version 1)
Quarter: 2025Q2

REPORT INFORMATION
  Report Type: Spontaneous
  Country: US (occurrence: None)
  Receive Date: 20250618
  Receipt Date: 20250618
  Transmission Date: 20250717
  Serious: Yes (Life-Threatening)
  Sender: FDA-CTU
  Company Number: None

PATIENT

DRUGS (1)
  1. TRUVADA [Suspect]
     Active Substance: EMTRICITABINE\TENOFOVIR DISOPROXIL FUMARATE
     Indication: Prophylaxis
     Dosage: OTHER QUANTITY : 1 TABLET(S);?FREQUENCY : DAILY;?
     Route: 048
     Dates: start: 20250617, end: 20250617

REACTIONS (6)
  - Injury associated with device [None]
  - Expired product administered [None]
  - Discomfort [None]
  - Dizziness [None]
  - Headache [None]
  - Accidental exposure to product [None]

NARRATIVE: CASE EVENT DATE: 20250617
